FAERS Safety Report 20533604 (Version 4)
Quarter: 2023Q2

REPORT INFORMATION
  Report Type: Report from Study
  Country: EG (occurrence: EG)
  Receive Date: 20220301
  Receipt Date: 20230617
  Transmission Date: 20230721
  Serious: Yes (Other)
  Sender: FDA-Public Use
  Company Number: CA-NOVARTISPH-NVSC2022EG046317

PATIENT
  Age: 49 Year
  Sex: Female

DRUGS (14)
  1. COSENTYX [Suspect]
     Active Substance: SECUKINUMAB
     Indication: Psoriatic arthropathy
     Dosage: 150 MG, BIW, THEN 150 MG, QMO
     Route: 058
     Dates: start: 202109, end: 202110
  2. COSENTYX [Suspect]
     Active Substance: SECUKINUMAB
     Dosage: 150 MG, BIW
     Route: 065
     Dates: start: 202111
  3. COSENTYX [Suspect]
     Active Substance: SECUKINUMAB
     Dosage: 150 MG 1- 4 PENS IN 2 MONTHS (2 PENS MONTHLY)
     Route: 058
     Dates: start: 202108, end: 2022
  4. COSENTYX [Suspect]
     Active Substance: SECUKINUMAB
     Dosage: 150 MG
     Route: 058
     Dates: start: 202206, end: 202212
  5. COSENTYX [Suspect]
     Active Substance: SECUKINUMAB
     Dosage: 150 MG, QMO (FOLLOWED BY 1 PEN MONTHLY)
     Route: 058
     Dates: start: 20230607
  6. DICLOFENAC SODIUM [Concomitant]
     Active Substance: DICLOFENAC SODIUM
     Indication: Antibiotic therapy
     Dosage: 1 DOSAGE FORM, QD (DAILY EVERY 12HRS FOR 5 DAYS)
     Route: 048
     Dates: start: 20211119
  7. BISOPROLOL FUMARATE [Concomitant]
     Active Substance: BISOPROLOL FUMARATE
     Indication: Product used for unknown indication
     Dosage: 1 DOSAGE FORM, BID (MORNING AND NIGHT) STARTED 2 MONTHS AGO
     Route: 048
  8. CIPRALEX [Concomitant]
     Active Substance: ESCITALOPRAM OXALATE
     Indication: Antidepressant therapy
     Dosage: 1 DOSAGE FORM, QD
     Route: 048
     Dates: start: 202109
  9. CIPRALEX [Concomitant]
     Active Substance: ESCITALOPRAM OXALATE
     Indication: Emotional disorder
     Dosage: 0.5 DOSAGE FORM, QD
     Route: 048
  10. CIPRALEX [Concomitant]
     Active Substance: ESCITALOPRAM OXALATE
     Indication: Anxiety
  11. CELEBREX [Concomitant]
     Active Substance: CELECOXIB
     Indication: Product used for unknown indication
     Dosage: UNK
     Route: 065
  12. OMEGA 3 [Concomitant]
     Active Substance: CAPSAICIN
     Indication: Product used for unknown indication
     Dosage: UNK
     Route: 065
     Dates: start: 2019
  13. VITAMIN A AND VITAMIN D [Concomitant]
     Active Substance: PETROLATUM
     Indication: Product used for unknown indication
     Dosage: 10000 IU, QW
     Route: 048
     Dates: start: 2019
  14. VITAMIN B COMPLEX [Concomitant]
     Active Substance: CYANOCOBALAMIN\DEXPANTHENOL\NIACINAMIDE\PYRIDOXINE HYDROCHLORIDE\RIBOFLAVIN 5^-PHOSPHATE SODIUM\THIA
     Indication: Product used for unknown indication
     Dosage: UNK
     Route: 065
     Dates: start: 2019

REACTIONS (28)
  - Urinary tract infection [Recovered/Resolved]
  - Pulmonary oedema [Recovered/Resolved]
  - Chest discomfort [Recovered/Resolved]
  - Chest pain [Recovered/Resolved]
  - Fall [Recovering/Resolving]
  - Tongue abscess [Recovering/Resolving]
  - Dysphagia [Recovering/Resolving]
  - Dysarthria [Recovering/Resolving]
  - Psoriatic arthropathy [Not Recovered/Not Resolved]
  - Arthralgia [Recovering/Resolving]
  - Joint injury [Recovering/Resolving]
  - Hypokinesia [Recovering/Resolving]
  - Chest wall cyst [Recovered/Resolved]
  - Fibromyalgia [Unknown]
  - Stomatitis [Unknown]
  - Sinusitis [Unknown]
  - Blood pressure increased [Not Recovered/Not Resolved]
  - Fatigue [Not Recovered/Not Resolved]
  - Insomnia [Recovering/Resolving]
  - Back pain [Unknown]
  - Joint stiffness [Recovering/Resolving]
  - Limb discomfort [Recovering/Resolving]
  - Dandruff [Recovering/Resolving]
  - Nail psoriasis [Recovering/Resolving]
  - Condition aggravated [Unknown]
  - Off label use [Recovered/Resolved]
  - Inappropriate schedule of product administration [Not Recovered/Not Resolved]
  - Drug ineffective [Unknown]

NARRATIVE: CASE EVENT DATE: 20210901
